FAERS Safety Report 10496159 (Version 1)
Quarter: 2014Q4

REPORT INFORMATION
  Report Type: Spontaneous
  Country: GB (occurrence: GB)
  Receive Date: 20141003
  Receipt Date: 20141003
  Transmission Date: 20150528
  Serious: Yes (Other)
  Sender: FDA-Public Use
  Company Number: GB-BAXTER-2014BAX057986

PATIENT
  Sex: Male

DRUGS (4)
  1. METRONIDAZOLE. [Suspect]
     Active Substance: METRONIDAZOLE
     Indication: PERITONSILLAR ABSCESS
     Route: 048
     Dates: start: 20140907, end: 20140909
  2. METRONIDAZOLE 500 MG / 100 ML INTRAVENOUS INFUSION [Suspect]
     Active Substance: METRONIDAZOLE
     Indication: PERITONSILLAR ABSCESS
     Route: 041
     Dates: start: 20140910, end: 20140911
  3. BENZYLPENICILLIN V [Suspect]
     Active Substance: PENICILLIN V POTASSIUM
     Route: 048
     Dates: start: 20140907, end: 20140911
  4. BENZYLPENICILLIN V [Suspect]
     Active Substance: PENICILLIN V POTASSIUM
     Indication: PERITONSILLAR ABSCESS
     Route: 041
     Dates: start: 20140907, end: 20140909

REACTIONS (5)
  - Alanine aminotransferase increased [None]
  - Blood bilirubin increased [None]
  - Hepatocellular injury [None]
  - Blood alkaline phosphatase increased [None]
  - Liver function test abnormal [Unknown]

NARRATIVE: CASE EVENT DATE: 20140907
